FAERS Safety Report 11282655 (Version 2)
Quarter: 2015Q3

REPORT INFORMATION
  Report Type: Spontaneous
  Country: DE (occurrence: DE)
  Receive Date: 20150720
  Receipt Date: 20150724
  Transmission Date: 20151125
  Serious: Yes (Life-Threatening, Hospitalization)
  Sender: FDA-Public Use
  Company Number: PHHY2015DE084467

PATIENT
  Age: 53 Year
  Sex: Male

DRUGS (8)
  1. DELIX [Concomitant]
     Active Substance: RAMIPRIL
     Indication: HYPERTENSION
     Dosage: UNK
     Route: 065
  2. LEPONEX [Suspect]
     Active Substance: CLOZAPINE
     Dosage: 500 MG, QD
     Route: 065
     Dates: start: 20150701, end: 20150709
  3. HALDOL [Concomitant]
     Active Substance: HALOPERIDOL
     Indication: PRODUCT USED FOR UNKNOWN INDICATION
     Dosage: UNK
     Route: 065
     Dates: end: 20150709
  4. SEROQUEL [Concomitant]
     Active Substance: QUETIAPINE FUMARATE
     Indication: PRODUCT USED FOR UNKNOWN INDICATION
     Dosage: UNK
     Route: 065
     Dates: end: 20150709
  5. LEPONEX [Suspect]
     Active Substance: CLOZAPINE
     Dosage: 475 MG, QD
     Route: 065
     Dates: end: 20150630
  6. MOVICOL [Concomitant]
     Active Substance: POLYETHYLENE GLYCOL 3350\POTASSIUM CHLORIDE\SODIUM BICARBONATE\SODIUM CHLORIDE
     Indication: CONSTIPATION
     Dosage: UNK
     Route: 065
  7. LEPONEX [Suspect]
     Active Substance: CLOZAPINE
     Indication: PSYCHOTIC DISORDER
     Dosage: 12.5 MG, QD
     Route: 065
     Dates: start: 20150611
  8. HCT [Concomitant]
     Active Substance: HYDROCHLOROTHIAZIDE
     Indication: HYPERTENSION
     Dosage: UNK
     Route: 065

REACTIONS (15)
  - Pyrexia [Not Recovered/Not Resolved]
  - Haemoglobin decreased [Recovering/Resolving]
  - Psychotic disorder [Recovered/Resolved]
  - Fatigue [Not Recovered/Not Resolved]
  - Blood sodium decreased [Recovering/Resolving]
  - Platelet count decreased [Recovering/Resolving]
  - Inflammatory marker increased [Recovering/Resolving]
  - Hepatic enzyme increased [Recovering/Resolving]
  - Hyperhidrosis [Not Recovered/Not Resolved]
  - Delirium [Recovered/Resolved]
  - Eosinophilia [Recovering/Resolving]
  - Prothrombin time prolonged [Recovering/Resolving]
  - Abnormal behaviour [Unknown]
  - Disorientation [Recovered/Resolved]
  - Serum ferritin increased [Recovering/Resolving]

NARRATIVE: CASE EVENT DATE: 20150709
